FAERS Safety Report 6140380-2 (Version None)
Quarter: 2009Q1

REPORT INFORMATION
  Report Type: 
  Country: None (occurrence: None)
  Receive Date: 20090331
  Receipt Date: 20090331
  Transmission Date: 20090719
  Serious: Yes (Other)
  Sender: FDA-Public Use
  Company Number: None

PATIENT
  Age: 15 Year
  Sex: Male
  Weight: 68.0396 kg

DRUGS (2)
  1. OXYBUTYNIN CHLORIDE [Suspect]
     Indication: NEUROGENIC BLADDER
     Dosage: 1 TAB 2 DAY OTHER ONLY TRIED A COUPLE TIMES
     Route: 050
     Dates: start: 20090301, end: 20090301
  2. UNKNOWN [Concomitant]

REACTIONS (3)
  - CATHETER RELATED COMPLICATION [None]
  - CHROMATURIA [None]
  - PRODUCT QUALITY ISSUE [None]
